FAERS Safety Report 5232084-5 (Version None)
Quarter: 2007Q1

REPORT INFORMATION
  Report Type: 
  Country: None (occurrence: None)
  Receive Date: 20061201
  Receipt Date: 20060831
  Transmission Date: 20070707
  Serious: No
  Sender: FDA-Public Use
  Company Number: US200609000608

PATIENT
  Age: 83 Year
  Sex: Female

DRUGS (7)
  1. CYMBALTA [Suspect]
     Indication: NEUROPATHY
     Dosage: 30 MG, DAILY (1/D)
     Dates: start: 20060830
  2. ATENOLOL [Concomitant]
  3. TRAMADOL HCL [Concomitant]
  4. TYLENOL /USA/ (PARACETAMOL) [Concomitant]
  5. ACETAMINOPHEN W/ PROPOXYPHENE HCL [Concomitant]
  6. NITROGLYCERIN ^DUMEX^ (GLYCERYL TRINITRATE) [Concomitant]
  7. PLANT ALKALOIDS AND OTHER NATURAL PRODUCTS [Concomitant]

REACTIONS (3)
  - CONSTIPATION [None]
  - NAUSEA [None]
  - PAROSMIA [None]
